FAERS Safety Report 13941797 (Version 4)
Quarter: 2017Q4

REPORT INFORMATION
  Report Type: Spontaneous
  Country: US (occurrence: US)
  Receive Date: 20170906
  Receipt Date: 20171015
  Transmission Date: 20180320
  Serious: Yes (Hospitalization)
  Sender: FDA-Public Use
  Company Number: US-BEH-2017083410

PATIENT
  Age: 35 Year
  Sex: Female

DRUGS (4)
  1. HAEMATE P [Suspect]
     Active Substance: ANTIHEMOPHILIC FACTOR HUMAN
     Dosage: 3045 UNITS, PRN/EVERY 12 HOURS
     Route: 042
     Dates: start: 20170901
  2. HAEMATE P [Suspect]
     Active Substance: ANTIHEMOPHILIC FACTOR HUMAN
     Dosage: 3045 UNK, UNK
     Route: 042
     Dates: start: 20171003
  3. HAEMATE P [Suspect]
     Active Substance: ANTIHEMOPHILIC FACTOR HUMAN
     Indication: COAGULOPATHY
     Dosage: 3045 RCOF UNITS, QD
     Route: 042
     Dates: start: 20170828
  4. HAEMATE P [Suspect]
     Active Substance: ANTIHEMOPHILIC FACTOR HUMAN
     Dosage: 3045 RCOF UNITS, EVERY 12 HOURS
     Route: 042
     Dates: start: 20170908

REACTIONS (3)
  - Skin haemorrhage [Unknown]
  - Wound infection [Not Recovered/Not Resolved]
  - Scratch [Unknown]

NARRATIVE: CASE EVENT DATE: 20170901
